FAERS Safety Report 23808426 (Version 1)
Quarter: 2024Q2

REPORT INFORMATION
  Report Type: Spontaneous
  Country: DE (occurrence: DE)
  Receive Date: 20240502
  Receipt Date: 20240502
  Transmission Date: 20240716
  Serious: Yes (Other)
  Sender: FDA-Public Use
  Company Number: None

PATIENT
  Sex: Female

DRUGS (3)
  1. CHLORHEXIDINE GLUCONATE [Suspect]
     Active Substance: CHLORHEXIDINE GLUCONATE
  2. CHLORHEXIDINE GLUCONATE [Suspect]
     Active Substance: CHLORHEXIDINE GLUCONATE
     Indication: Product used for unknown indication
     Dosage: UNK
  3. chlorhexamed dental-gel [Concomitant]
     Indication: Product used for unknown indication
     Dosage: UNK

REACTIONS (5)
  - Diplopia [Recovered/Resolved]
  - Multiple sclerosis relapse [Unknown]
  - Headache [Recovered/Resolved]
  - Strabismus [Recovered/Resolved]
  - Sensory disturbance [Recovered/Resolved]
